FAERS Safety Report 18787478 (Version 10)
Quarter: 2022Q1

REPORT INFORMATION
  Report Type: Report from Study
  Country: CN (occurrence: None)
  Receive Date: 20210126
  Receipt Date: 20220201
  Transmission Date: 20220423
  Serious: Yes (Hospitalization)
  Sender: FDA-Public Use
  Company Number: CN-ROCHE-2752958

PATIENT
  Age: 52 Year
  Sex: Female
  Weight: 60 kg

DRUGS (43)
  1. TRASTUZUMAB [Suspect]
     Active Substance: TRASTUZUMAB
     Indication: HER2 positive breast cancer
     Dosage: ON 29/DEC/2020, SHE RECEIVED MOST RECENT DOSE OF TRANSTUZUMAB 480 MG PRIOR TO ADVERSE EVENT.
     Route: 041
     Dates: start: 20201229
  2. PERTUZUMAB [Suspect]
     Active Substance: PERTUZUMAB
     Indication: HER2 positive breast cancer
     Dosage: ON 29/DEC/2020, SHE RECEIVED MOST RECENT DOSE OF PERTUZUMAB 840 MG PRIOR TO ADVERSE EVENT.
     Route: 042
     Dates: start: 20201229
  3. DOXORUBICIN [Suspect]
     Active Substance: DOXORUBICIN
     Indication: HER2 positive breast cancer
     Dosage: ON 09/DEC/2020, SHE RECEIVED MOST RECENT DOSE OF DOXIRUBACIN 97.2 MG PRIOR TO ADVERSE EVENT.
     Route: 042
     Dates: start: 20201006
  4. CYCLOPHOSPHAMIDE [Suspect]
     Active Substance: CYCLOPHOSPHAMIDE
     Indication: HER2 positive breast cancer
     Dosage: ON 09/DEC/2020, SHE RECEIVED MOST RECENT DOSE OF CYCLOPHOSPHAMIDE 972 MG PRIOR TO ADVERSE EVENT.
     Route: 042
     Dates: start: 20201006
  5. DOCETAXEL [Suspect]
     Active Substance: DOCETAXEL
     Indication: HER2 positive breast cancer
     Dosage: ON 29/DEC/2020, SHE RECEIVED MOST RECENT DOSE OF DOCETAXEL 972 MG PRIOR TO ADVERSE EVENT.
     Route: 042
     Dates: start: 20201229
  6. PALONOSETRON HYDROCHLORIDE [Concomitant]
     Active Substance: PALONOSETRON HYDROCHLORIDE
     Indication: Vomiting
     Route: 042
     Dates: start: 20201118, end: 20201118
  7. PALONOSETRON HYDROCHLORIDE [Concomitant]
     Active Substance: PALONOSETRON HYDROCHLORIDE
     Route: 042
     Dates: start: 20210125, end: 20210125
  8. PALONOSETRON HYDROCHLORIDE [Concomitant]
     Active Substance: PALONOSETRON HYDROCHLORIDE
     Route: 042
     Dates: start: 20210218, end: 20210218
  9. TIOPRONIN [Concomitant]
     Active Substance: TIOPRONIN
     Route: 042
     Dates: start: 20201118, end: 20201118
  10. TIOPRONIN [Concomitant]
     Active Substance: TIOPRONIN
     Route: 042
     Dates: start: 20201209, end: 20201210
  11. TIOPRONIN [Concomitant]
     Active Substance: TIOPRONIN
     Route: 042
     Dates: start: 20201229, end: 20201229
  12. TIOPRONIN [Concomitant]
     Active Substance: TIOPRONIN
     Route: 042
     Dates: start: 20210311, end: 20210312
  13. DEXAMETHASONE SODIUM PHOSPHATE [Concomitant]
     Active Substance: DEXAMETHASONE SODIUM PHOSPHATE
     Indication: Infusion related reaction
     Route: 042
     Dates: start: 20201118, end: 20201118
  14. DEXAMETHASONE SODIUM PHOSPHATE [Concomitant]
     Active Substance: DEXAMETHASONE SODIUM PHOSPHATE
     Route: 042
     Dates: start: 20201209, end: 20201210
  15. DEXAMETHASONE SODIUM PHOSPHATE [Concomitant]
     Active Substance: DEXAMETHASONE SODIUM PHOSPHATE
     Route: 042
     Dates: start: 20201229, end: 20201229
  16. DEXAMETHASONE SODIUM PHOSPHATE [Concomitant]
     Active Substance: DEXAMETHASONE SODIUM PHOSPHATE
     Route: 042
     Dates: start: 20210125, end: 20210125
  17. DEXAMETHASONE SODIUM PHOSPHATE [Concomitant]
     Active Substance: DEXAMETHASONE SODIUM PHOSPHATE
     Route: 042
     Dates: start: 20210218, end: 20210218
  18. DEXAMETHASONE SODIUM PHOSPHATE [Concomitant]
     Active Substance: DEXAMETHASONE SODIUM PHOSPHATE
     Route: 042
     Dates: start: 20210311, end: 20210312
  19. VITAMIN B6 [Concomitant]
     Active Substance: PYRIDOXINE HYDROCHLORIDE
     Route: 042
     Dates: start: 20201118, end: 20201118
  20. VITAMIN B6 [Concomitant]
     Active Substance: PYRIDOXINE HYDROCHLORIDE
     Route: 042
     Dates: start: 20201209, end: 20201210
  21. VITAMIN B6 [Concomitant]
     Active Substance: PYRIDOXINE HYDROCHLORIDE
     Route: 042
     Dates: start: 20201229, end: 20201229
  22. VITAMIN B6 [Concomitant]
     Active Substance: PYRIDOXINE HYDROCHLORIDE
     Route: 042
     Dates: start: 20210125, end: 20210125
  23. VITAMIN B6 [Concomitant]
     Active Substance: PYRIDOXINE HYDROCHLORIDE
     Route: 042
     Dates: start: 20210311, end: 20210312
  24. VITAMIN C [Concomitant]
     Active Substance: ASCORBIC ACID
     Route: 042
     Dates: start: 20201118, end: 20201118
  25. VITAMIN C [Concomitant]
     Active Substance: ASCORBIC ACID
     Route: 042
     Dates: start: 20201209, end: 20201210
  26. VITAMIN C [Concomitant]
     Active Substance: ASCORBIC ACID
     Route: 042
     Dates: start: 20201229, end: 20201229
  27. VITAMIN C [Concomitant]
     Active Substance: ASCORBIC ACID
     Route: 042
     Dates: start: 20210125, end: 20210125
  28. VITAMIN C [Concomitant]
     Active Substance: ASCORBIC ACID
     Route: 042
     Dates: start: 20210311, end: 20210312
  29. INSULIN NOS [Concomitant]
     Active Substance: INSULIN NOS
     Dosage: DOSE 8 U
     Route: 042
     Dates: start: 20201118, end: 20201118
  30. INSULIN NOS [Concomitant]
     Active Substance: INSULIN NOS
     Dosage: DOSE 8 U
     Route: 042
     Dates: start: 20201209, end: 20201210
  31. INSULIN NOS [Concomitant]
     Active Substance: INSULIN NOS
     Dosage: DOSE 8 U
     Route: 042
     Dates: start: 20201229, end: 20201229
  32. INSULIN NOS [Concomitant]
     Active Substance: INSULIN NOS
     Dosage: DOSE 8 U
     Route: 042
     Dates: start: 20210125, end: 20210125
  33. INSULIN NOS [Concomitant]
     Active Substance: INSULIN NOS
     Dosage: DOSE 8 U
     Route: 042
     Dates: start: 20210311, end: 20210312
  34. POTASSIUM CHLORIDE [Concomitant]
     Active Substance: POTASSIUM CHLORIDE
     Route: 042
     Dates: start: 20201118, end: 20201118
  35. POTASSIUM CHLORIDE [Concomitant]
     Active Substance: POTASSIUM CHLORIDE
     Route: 042
     Dates: start: 20201209, end: 20201210
  36. POTASSIUM CHLORIDE [Concomitant]
     Active Substance: POTASSIUM CHLORIDE
     Route: 042
     Dates: start: 20201229, end: 20201229
  37. POTASSIUM CHLORIDE [Concomitant]
     Active Substance: POTASSIUM CHLORIDE
     Route: 042
     Dates: start: 20210125, end: 20210125
  38. POTASSIUM CHLORIDE [Concomitant]
     Active Substance: POTASSIUM CHLORIDE
     Route: 042
     Dates: start: 20210311, end: 20210312
  39. MAGNESIUM ISOGLYCYRRHIZINATE [Concomitant]
     Active Substance: MAGNESIUM ISOGLYCYRRHIZINATE
     Route: 042
     Dates: start: 20210118, end: 20210125
  40. GLUTATHIONE [Concomitant]
     Active Substance: GLUTATHIONE
     Route: 042
     Dates: start: 20210118, end: 20210125
  41. HERBALS\DIAMMONIUM GLYCYRRHIZINATE [Concomitant]
     Active Substance: HERBALS\DIAMMONIUM GLYCYRRHIZINATE
     Route: 048
     Dates: start: 20210118, end: 20210125
  42. CYDIODINE [Concomitant]
     Indication: Aphthous ulcer
     Route: 061
     Dates: start: 20210101, end: 20210114
  43. BING PENG SAN [Concomitant]
     Indication: Aphthous ulcer
     Route: 061
     Dates: start: 20210101, end: 20210114

REACTIONS (1)
  - Alanine aminotransferase increased [Recovered/Resolved]

NARRATIVE: CASE EVENT DATE: 20210118
